FAERS Safety Report 13705000 (Version 1)
Quarter: 2017Q2

REPORT INFORMATION
  Report Type: Spontaneous
  Country: US (occurrence: US)
  Receive Date: 20170629
  Receipt Date: 20170629
  Transmission Date: 20170830
  Serious: Yes (Other)
  Sender: FDA-Public Use
  Company Number: None

PATIENT
  Age: 80 Year
  Sex: Male
  Weight: 68.4 kg

DRUGS (1)
  1. FLUCTICASONE [Suspect]
     Active Substance: FLUTICASONE
     Indication: SEASONAL ALLERGY
     Dosage: ?          OTHER DOSE: 1  DAILY NASAL?
     Route: 045
     Dates: start: 20170623, end: 20170625

REACTIONS (7)
  - Myalgia [None]
  - Body temperature increased [None]
  - Chills [None]
  - Headache [None]
  - Oral disorder [None]
  - Nasal congestion [None]
  - Sinus headache [None]

NARRATIVE: CASE EVENT DATE: 20170623
